FAERS Safety Report 9776924 (Version 1)
Quarter: 2013Q4

REPORT INFORMATION
  Report Type: Other
  Country: IT (occurrence: IT)
  Receive Date: 20131221
  Receipt Date: 20131221
  Transmission Date: 20140711
  Serious: Yes (Life-Threatening)
  Sender: FDA-Public Use
  Company Number: IT-SUN PHARMACEUTICAL INDUSTRIES LTD-2013SUN05231

PATIENT
  Sex: 0

DRUGS (2)
  1. OXALIPLATIN [Suspect]
     Indication: PANCREATIC CARCINOMA
     Dosage: 120 MG, CYCLIC
     Route: 042
  2. GEMCITABINE [Concomitant]

REACTIONS (1)
  - Bronchospasm [Recovered/Resolved]
